FAERS Safety Report 12315272 (Version 1)
Quarter: 2016Q2

REPORT INFORMATION
  Report Type: Spontaneous
  Country: US (occurrence: US)
  Receive Date: 20160428
  Receipt Date: 20160428
  Transmission Date: 20160815
  Serious: No
  Sender: FDA-Public Use
  Company Number: US-009507513-1604USA008216

PATIENT
  Age: 52 Year
  Sex: Male

DRUGS (1)
  1. GRASTEK [Suspect]
     Active Substance: PHLEUM PRATENSE POLLEN
     Dosage: UNKNOWN
     Route: 048
     Dates: start: 2016

REACTIONS (2)
  - Memory impairment [Unknown]
  - Mental disorder [Unknown]

NARRATIVE: CASE EVENT DATE: 20160328
